FAERS Safety Report 5209954-7 (Version None)
Quarter: 2007Q1

REPORT INFORMATION
  Report Type: 
  Country: None (occurrence: None)
  Receive Date: 20070116
  Receipt Date: 20070109
  Transmission Date: 20070707
  Serious: Yes (Hospitalization)
  Sender: FDA-Public Use
  Company Number: US-AMGEN-STX206396

PATIENT
  Sex: Female

DRUGS (2)
  1. ENBREL [Suspect]
     Indication: PSORIASIS
     Route: 058
     Dates: start: 20060405, end: 20061230
  2. TYLENOL [Concomitant]

REACTIONS (4)
  - CONTUSION [None]
  - HEPATITIS [None]
  - PANCREATITIS [None]
  - VAGINAL HAEMORRHAGE [None]
